FAERS Safety Report 8486851-5 (Version None)
Quarter: 2012Q3

REPORT INFORMATION
  Report Type: 
  Country: None (occurrence: None)
  Receive Date: 20120704
  Receipt Date: 20120628
  Transmission Date: 20120928
  Serious: Yes (Death, Life-Threatening, Hospitalization)
  Sender: FDA-Public Use
  Company Number: PL-ELI_LILLY_AND_COMPANY-PL201207000617

PATIENT
  Sex: Female
  Weight: 59 kg

DRUGS (3)
  1. OTHER PHARMA COMPANY INV DRUG [Suspect]
     Indication: LUNG ADENOCARCINOMA
     Dosage: DOUBLE-BLIND, DAY 1+8 OF C1 THEN DAY 1 OF EACH CYCLE
     Route: 042
     Dates: start: 20120302, end: 20120323
  2. PEMETREXED [Suspect]
     Indication: LUNG ADENOCARCINOMA
     Dosage: UNK, 1 IN 3 WK
     Route: 042
     Dates: start: 20120302, end: 20120323
  3. CISPLATIN [Suspect]
     Indication: LUNG ADENOCARCINOMA
     Dosage: UNK, 1 IN 3 WK
     Route: 042
     Dates: start: 20120302, end: 20120323

REACTIONS (2)
  - FEBRILE NEUTROPENIA [None]
  - DIARRHOEA [None]
